FAERS Safety Report 14553933 (Version 1)
Quarter: 2018Q1

REPORT INFORMATION
  Report Type: Spontaneous
  Country: US (occurrence: US)
  Receive Date: 20180220
  Receipt Date: 20180220
  Transmission Date: 20180509
  Serious: Yes (Death)
  Sender: FDA-Public Use
  Company Number: US-VIRTUS PHARMACEUTICALS, LLC-2018VTS00005

PATIENT
  Age: 34 Year
  Sex: Male
  Weight: 99.7 kg

DRUGS (8)
  1. AMITRIPTYLINE [Suspect]
     Active Substance: AMITRIPTYLINE
     Route: 065
  2. METHAMPHETAMINE [Suspect]
     Active Substance: METHAMPHETAMINE
     Route: 065
  3. TEMAZEPAM. [Suspect]
     Active Substance: TEMAZEPAM
     Route: 065
  4. U-47700 [Suspect]
     Active Substance: U-47700
     Route: 065
  5. FLUBROMAZELAM [Suspect]
     Active Substance: FLUBROMAZOLAM
     Route: 065
  6. DIAZEPAM. [Suspect]
     Active Substance: DIAZEPAM
     Route: 065
  7. 3-FLUOROPHENMETRAZINE [Suspect]
     Active Substance: 3-FLUOROPHENMETRAZINE
     Route: 065
  8. DELORAZEPAM [Suspect]
     Active Substance: DELORAZEPAM
     Route: 065

REACTIONS (14)
  - Pulmonary oedema [None]
  - Kidney enlargement [None]
  - Respiratory depression [Fatal]
  - Hepatomegaly [None]
  - Splenomegaly [None]
  - Sedation [Fatal]
  - Hypertensive heart disease [None]
  - Pulmonary congestion [None]
  - Cardiomegaly [None]
  - Arrhythmia [None]
  - Unresponsive to stimuli [None]
  - Accidental death [None]
  - Sudden cardiac death [None]
  - Toxicity to various agents [Fatal]
